FAERS Safety Report 18519793 (Version 1)
Quarter: 2020Q4

REPORT INFORMATION
  Report Type: Spontaneous
  Country: GR (occurrence: GR)
  Receive Date: 20201118
  Receipt Date: 20201118
  Transmission Date: 20210114
  Serious: Yes (Other)
  Sender: FDA-Public Use
  Company Number: GR-009507513-2011GRC009703

PATIENT
  Sex: Male

DRUGS (2)
  1. BRIDION [Suspect]
     Active Substance: SUGAMMADEX
     Indication: NEUROMUSCULAR BLOCKADE REVERSAL
     Dosage: UNK
  2. ESMERON [Suspect]
     Active Substance: ROCURONIUM BROMIDE
     Dosage: INITIALLY AT 1MG/KG, FOLLOWED BY 1/3 OF 0.8MG/KG (APPROXIMATELY 0.26MG/KG) AFTER 45 MINS AND THEN EV

REACTIONS (3)
  - Post procedural haemorrhage [Unknown]
  - Incorrect dose administered [Unknown]
  - Product use issue [Unknown]
